FAERS Safety Report 9089188 (Version 1)
Quarter: 2013Q1

REPORT INFORMATION
  Report Type: Spontaneous
  Country: IT (occurrence: IT)
  Receive Date: 20130218
  Receipt Date: 20130218
  Transmission Date: 20140127
  Serious: Yes (Other)
  Sender: FDA-Public Use
  Company Number: IT-MYLANLABS-2013S1002781

PATIENT
  Age: 66 Year
  Sex: Male

DRUGS (1)
  1. RANITIDINE [Suspect]
     Indication: ULCER
     Route: 048
     Dates: start: 20120901, end: 20120930

REACTIONS (2)
  - Arrhythmia [Recovered/Resolved]
  - Extrasystoles [Recovered/Resolved]
